FAERS Safety Report 8159044-9 (Version None)
Quarter: 2012Q1

REPORT INFORMATION
  Report Type: 
  Country: None (occurrence: None)
  Receive Date: 20120103
  Receipt Date: 20111102
  Transmission Date: 20120608
  Serious: No
  Sender: FDA-Public Use
  Company Number: AE-2011-002970

PATIENT
  Age: 63 Year
  Sex: Male
  Weight: 79.3795 kg

DRUGS (5)
  1. INUPROFEN (IBUPROFRN) [Concomitant]
  2. INCIVEK [Suspect]
     Dosage: 2250 MG (750 MG, 1 IN 8 HR), ORAL
     Route: 048
     Dates: start: 20110826
  3. PROMACTA [Concomitant]
  4. RIBAPAK (RIBAVIRIN) [Concomitant]
  5. PEGASYS [Concomitant]

REACTIONS (9)
  - FEELING ABNORMAL [None]
  - DYSURIA [None]
  - NASAL DISORDER [None]
  - URINE COLOUR ABNORMAL [None]
  - PLATELET COUNT DECREASED [None]
  - RED BLOOD CELL COUNT DECREASED [None]
  - SINUS DISORDER [None]
  - NASAL DRYNESS [None]
  - WHITE BLOOD CELL COUNT DECREASED [None]
